FAERS Safety Report 5236066-9 (Version None)
Quarter: 2007Q1

REPORT INFORMATION
  Report Type: 
  Country: None (occurrence: None)
  Receive Date: 20070212
  Receipt Date: 20070206
  Transmission Date: 20070707
  Serious: Yes (Death)
  Sender: FDA-Public Use
  Company Number: US-SANOFI-SYNTHELABO-A03200604427

PATIENT
  Sex: Male
  Weight: 59 kg

DRUGS (2)
  1. AMBIEN [Suspect]
     Indication: INITIAL INSOMNIA
     Route: 048
     Dates: start: 20040407
  2. AMBIEN [Suspect]
     Indication: MIDDLE INSOMNIA
     Route: 048
     Dates: start: 20040407

REACTIONS (18)
  - COGNITIVE DISORDER [None]
  - COMPLETED SUICIDE [None]
  - DEPRESSION [None]
  - DIZZINESS [None]
  - DYSKINESIA [None]
  - EUPHORIC MOOD [None]
  - EYE MOVEMENT DISORDER [None]
  - FEELING ABNORMAL [None]
  - GAIT DISTURBANCE [None]
  - HALLUCINATION, VISUAL [None]
  - INJURY ASPHYXIATION [None]
  - JUDGEMENT IMPAIRED [None]
  - MOTOR DYSFUNCTION [None]
  - MOVEMENT DISORDER [None]
  - NAUSEA [None]
  - PARANOIA [None]
  - RESTLESSNESS [None]
  - SUICIDAL IDEATION [None]
